FAERS Safety Report 4770725-7 (Version None)
Quarter: 2005Q3

REPORT INFORMATION
  Report Type: 
  Country: None (occurrence: None)
  Receive Date: 20050914
  Receipt Date: 20050901
  Transmission Date: 20060218
  Serious: Yes (Other)
  Sender: FDA-Public Use
  Company Number: SE-2005-018471

PATIENT
  Sex: Female

DRUGS (2)
  1. BETASERON [Suspect]
     Indication: SECONDARY PROGRESSIVE MULTIPLE SCLEROSIS
     Dates: start: 19990901, end: 20050801
  2. NEURONTIN [Concomitant]

REACTIONS (2)
  - ARTERIAL STENOSIS [None]
  - MYOCARDIAL INFARCTION [None]
